FAERS Safety Report 11173186 (Version 2)
Quarter: 2015Q2

REPORT INFORMATION
  Report Type: Spontaneous
  Country: US (occurrence: US)
  Receive Date: 20150608
  Receipt Date: 20150624
  Transmission Date: 20150821
  Serious: No
  Sender: FDA-Public Use
  Company Number: US-PFIZER INC-2015029892

PATIENT
  Age: 49 Year
  Sex: Female
  Weight: 64.36 kg

DRUGS (18)
  1. LISINOPRIL AND HYDROCHLOROTHIAZIDE [Concomitant]
     Active Substance: HYDROCHLOROTHIAZIDE\LISINOPRIL
     Indication: RENAL DISORDER
  2. LIPITOR [Suspect]
     Active Substance: ATORVASTATIN CALCIUM
     Indication: BLOOD CHOLESTEROL
     Dosage: 80 MG, 1X/DAY
  3. FENTANYL. [Concomitant]
     Active Substance: FENTANYL
     Dosage: 50 ?G/HR, PATCH 72 HOUR 1 PATCH TO SKIN
  4. TIZANIDINE (TIZANIDINE) [Concomitant]
     Active Substance: TIZANIDINE
     Dosage: 4 MG, 1-2 TABLET AS NEEDED TWICE DAILY
  5. ACETYLSALICYLIC ACID [Concomitant]
     Active Substance: ASPIRIN
     Dosage: 81 MG, 1X/DAY
  6. LISINOPRIL AND HYDROCHLOROTHIAZIDE [Concomitant]
     Active Substance: HYDROCHLOROTHIAZIDE\LISINOPRIL
     Indication: BLOOD PRESSURE
     Dosage: LISINOPRIL 10MG- HYDROCHLOROTHIAZIDE 12.5MG
     Dates: start: 20131118
  7. DOCUSATE SODIUM AND SENNA [Concomitant]
     Active Substance: DOCUSATE SODIUM\SENNOSIDES
     Dosage: 50/8.6 AT 1 THREE TIMES PER DAY
  8. OMEPRAZOLE. [Concomitant]
     Active Substance: OMEPRAZOLE
     Indication: GASTROOESOPHAGEAL REFLUX DISEASE
     Dosage: 20 MG, 2X/DAY
  9. TRAZODONE HYDROCHLORIDE. [Concomitant]
     Active Substance: TRAZODONE HYDROCHLORIDE
     Dosage: 50 MG, 1-4 TABLETS AT BEDTIME
  10. CHANTIX [Suspect]
     Active Substance: VARENICLINE TARTRATE
     Dosage: MONTH PAK 0.5 MG X 11 + 1 MG X 42 TABLETS AS DIRECTED DAILY
  11. NORCO [Concomitant]
     Active Substance: ACETAMINOPHEN\HYDROCODONE BITARTRATE
     Dosage: 10-325 MG TABLET; AT 2 TABLETS EVERY 6 HRS
  12. LYRICA [Suspect]
     Active Substance: PREGABALIN
     Indication: PAIN
     Dosage: 150 MG (TWO, 75 MG CAPSULES) THREE TIMES A DAY
     Dates: start: 20131121
  13. LYRICA [Suspect]
     Active Substance: PREGABALIN
     Dosage: 200 MG, 3X/DAY
  14. NOVOLOG [Concomitant]
     Active Substance: INSULIN ASPART
     Dosage: UNK
     Route: 058
  15. AMITRIPTYLINE HCL [Concomitant]
     Active Substance: AMITRIPTYLINE
     Indication: SLEEP DISORDER
     Dosage: 25 MG, 1-3 (TABLETS FOR SLEEP EVERY EVENING)
     Dates: start: 20131118
  16. CALCIUM +D3 [Concomitant]
     Active Substance: CALCIUM\CHOLECALCIFEROL
     Dosage: CALCIUM 600MG- D3 200MG
  17. WELLBUTRIN SR [Concomitant]
     Active Substance: BUPROPION HYDROCHLORIDE
     Dosage: 200 MG, 2X/DAY
     Dates: start: 20150105
  18. VITAMIN C [Concomitant]
     Active Substance: ASCORBIC ACID
     Dosage: 500 MG, UNK

REACTIONS (4)
  - Nasal discomfort [Unknown]
  - Drug ineffective [Unknown]
  - Face injury [Unknown]
  - Scab [Unknown]
